FAERS Safety Report 6054317-8 (Version None)
Quarter: 2009Q1

REPORT INFORMATION
  Report Type: 
  Country: None (occurrence: None)
  Receive Date: 20090122
  Receipt Date: 20090106
  Transmission Date: 20090719
  Serious: Yes (Death)
  Sender: FDA-Public Use
  Company Number: PAR_02498_2009

PATIENT
  Age: 50 Year
  Sex: Male

DRUGS (9)
  1. IBUPROFEN [Suspect]
     Indication: COMPLETED SUICIDE
     Dosage: (DF ORAL)
     Route: 048
  2. ALLOPURINOL [Suspect]
     Indication: COMPLETED SUICIDE
     Dosage: (DF ORAL)
     Route: 048
  3. MELOXICAM [Suspect]
     Indication: COMPLETED SUICIDE
     Dosage: (DF ORAL)
     Route: 048
  4. METOPROLOL TARTRATE [Suspect]
     Indication: COMPLETED SUICIDE
     Dosage: (DF)
  5. NAPROXEN [Suspect]
     Indication: COMPLETED SUICIDE
     Dosage: (DF ORAL)
     Route: 048
  6. LISINOPRIL [Suspect]
     Indication: COMPLETED SUICIDE
     Dosage: (DF ORAL)
     Route: 048
  7. FEXOFENADINE W/PSEUDOEPHEDRINE HYDROCHLORIDE (NOT SPECIFIED) [Suspect]
     Indication: COMPLETED SUICIDE
     Dosage: (DF ORAL)
     Route: 048
  8. CLOPIDOGREL [Suspect]
     Indication: COMPLETED SUICIDE
     Dosage: (DF ORAL)
     Route: 048
  9. ATORVASTATIN [Suspect]
     Indication: COMPLETED SUICIDE
     Dosage: (DF ORAL)
     Route: 048

REACTIONS (3)
  - COMPLETED SUICIDE [None]
  - DRUG TOXICITY [None]
  - MULTIPLE DRUG OVERDOSE INTENTIONAL [None]
